FAERS Safety Report 18323746 (Version 1)
Quarter: 2020Q3

REPORT INFORMATION
  Report Type: Spontaneous
  Country: DE (occurrence: DE)
  Receive Date: 20200928
  Receipt Date: 20200928
  Transmission Date: 20201103
  Serious: Yes (Hospitalization)
  Sender: FDA-Public Use
  Company Number: DE-PFIZER INC-2020372147

PATIENT
  Age: 66 Year
  Sex: Female

DRUGS (7)
  1. IBUPROFEN. [Suspect]
     Active Substance: IBUPROFEN
     Dosage: UNSPECIFIED DOSE ^MG^
  2. METRONIDAZOLE. [Suspect]
     Active Substance: METRONIDAZOLE
     Dosage: 400 MG, TWICE A DAY (1?0?1?0)
  3. CLINDAMYCIN. [Suspect]
     Active Substance: CLINDAMYCIN
     Dosage: 300 MG, THREE TIMES A DAY (1?1?1?0)
  4. GLYCERYL TRINITRATE [Concomitant]
     Active Substance: NITROGLYCERIN
     Dosage: UNK MG, AS NEEDED
  5. METOPROLOL. [Concomitant]
     Active Substance: METOPROLOL
     Dosage: 47.5 MG, 1X/DAY (1?0?0?0)
  6. CANDESARTAN. [Concomitant]
     Active Substance: CANDESARTAN
     Dosage: 16 MG, 1X/DAY (1?0?0?0)
  7. NITRENDIPINE [Concomitant]
     Active Substance: NITRENDIPINE
     Dosage: UNK MG

REACTIONS (3)
  - Rash [Unknown]
  - Diarrhoea [Unknown]
  - Hypertension [Unknown]
